FAERS Safety Report 16986357 (Version 1)
Quarter: 2019Q4

REPORT INFORMATION
  Report Type: Spontaneous
  Country: US (occurrence: US)
  Receive Date: 20191101
  Receipt Date: 20191101
  Transmission Date: 20200122
  Serious: Yes (Hospitalization, Other)
  Sender: FDA-Public Use
  Company Number: US-BRISTOL-MYERS SQUIBB COMPANY-BMS-2019-104332

PATIENT
  Sex: Female

DRUGS (1)
  1. ELIQUIS [Suspect]
     Active Substance: APIXABAN
     Indication: THROMBOSIS
     Dosage: UNK
     Route: 065
     Dates: start: 2016

REACTIONS (8)
  - Cystitis [Unknown]
  - Kidney infection [Unknown]
  - Rib fracture [Unknown]
  - Limb discomfort [Unknown]
  - Nephrolithiasis [Unknown]
  - Uterine prolapse [Unknown]
  - Gallbladder disorder [Unknown]
  - Gait disturbance [Unknown]
